FAERS Safety Report 25080248 (Version 2)
Quarter: 2025Q1

REPORT INFORMATION
  Report Type: Spontaneous
  Country: US (occurrence: US)
  Receive Date: 20250314
  Receipt Date: 20250325
  Transmission Date: 20250408
  Serious: No
  Sender: AMGEN
  Company Number: US-AMGEN-USASP2025050365

PATIENT
  Sex: Female

DRUGS (1)
  1. TEPEZZA [Suspect]
     Active Substance: TEPROTUMUMAB-TRBW
     Indication: Product used for unknown indication
     Route: 065
     Dates: start: 202409, end: 20250213

REACTIONS (7)
  - Diplopia [Recovered/Resolved]
  - Teeth brittle [Recovered/Resolved]
  - Hair growth abnormal [Recovered/Resolved]
  - Ear discomfort [Recovered/Resolved]
  - Muscle spasms [Recovered/Resolved]
  - Dry skin [Recovered/Resolved]
  - Tinnitus [Recovered/Resolved]
